FAERS Safety Report 4346368-6 (Version None)
Quarter: 2004Q2

REPORT INFORMATION
  Report Type: 
  Country: None (occurrence: None)
  Receive Date: 20040426
  Receipt Date: 20021218
  Transmission Date: 20050107
  Serious: No
  Sender: FDA-Public Use
  Company Number: US-GLAXOSMITHKLINE-A0389714A

PATIENT
  Age: 43 Year
  Sex: Female

DRUGS (2)
  1. ZOFRAN [Suspect]
     Indication: IRRITABLE BOWEL SYNDROME
     Dosage: 4MG PER DAY
     Route: 048
     Dates: start: 20020101
  2. ATIVAN [Concomitant]

REACTIONS (7)
  - CHILLS [None]
  - DIZZINESS [None]
  - NAUSEA [None]
  - PHARMACEUTICAL PRODUCT COMPLAINT [None]
  - STOMACH DISCOMFORT [None]
  - TREMOR [None]
  - VOMITING [None]
